FAERS Safety Report 8285783-5 (Version None)
Quarter: 2012Q2

REPORT INFORMATION
  Report Type: 
  Country: None (occurrence: None)
  Receive Date: 20120413
  Receipt Date: 20120403
  Transmission Date: 20120825
  Serious: Yes (Hospitalization, Other)
  Sender: FDA-Public Use
  Company Number: US-ELI_LILLY_AND_COMPANY-US201007004860

PATIENT
  Sex: Female

DRUGS (45)
  1. FORTEO [Suspect]
     Dosage: 20 UG, QD
     Route: 065
  2. AMLODIPINE BESYLATE [Concomitant]
     Indication: BLOOD PRESSURE
  3. THEO-DUR [Concomitant]
  4. SINGULAIR [Concomitant]
  5. ALBUTEROL [Concomitant]
  6. PROAIR HFA [Concomitant]
  7. FORTEO [Suspect]
     Dosage: 20 UG, QD
     Route: 065
  8. POTASSIUM CHLORIDE [Concomitant]
  9. PREDNISONE TAB [Concomitant]
     Dosage: 10 MG, WEEKLY (1/W)
     Route: 065
  10. VITAMIN D [Concomitant]
  11. LIPITOR [Concomitant]
  12. TRAZODONE HCL [Concomitant]
  13. XANAX [Concomitant]
  14. SPIRIVA [Concomitant]
  15. MULTIPLE VITAMINS [Concomitant]
  16. OXYGEN [Concomitant]
     Dosage: UNK L, UNK
  17. ZOLPIDEM [Concomitant]
  18. XOPENEX [Concomitant]
  19. VERAPAMIL [Concomitant]
  20. PREDNISONE TAB [Concomitant]
     Dosage: 20 MG, WEEKLY (1/W)
     Route: 065
  21. CALCIUM CITRATE W/VITAMIN D NOS [Concomitant]
  22. AMBIEN [Concomitant]
  23. ADVAIR DISKUS 100/50 [Concomitant]
  24. SUCRALFATE [Concomitant]
  25. PREDNISONE TAB [Concomitant]
     Dosage: 20 MG, WEEKLY (1/W)
     Route: 065
  26. ZOLOFT [Concomitant]
  27. FUROSEMIDE [Concomitant]
  28. GABAPENTIN [Concomitant]
  29. OXYCODONE HCL [Concomitant]
  30. AMLODIPINE [Concomitant]
  31. FORTEO [Suspect]
     Dosage: 20 UG, QD
     Route: 065
  32. FORTEO [Suspect]
     Dosage: 20 UG, QD
     Route: 065
     Dates: end: 20110601
  33. OXYCONTIN [Concomitant]
  34. NYSTATIN [Concomitant]
  35. POTASSIUM [Concomitant]
  36. FORTEO [Suspect]
     Indication: OSTEOPOROSIS
     Dosage: 20 UG, QD
     Route: 065
     Dates: start: 20100622
  37. MAGNESIUM OXIDE [Concomitant]
  38. OMEPRAZOLE [Concomitant]
  39. LACTULOSE [Concomitant]
  40. FORTEO [Suspect]
     Dosage: 20 UG, QD
     Route: 065
     Dates: end: 20120201
  41. CALCIUM CARBONATE [Concomitant]
  42. DULCOLAX [Concomitant]
  43. MONTELUKAST [Concomitant]
  44. THEOPHYLLINE [Concomitant]
  45. MAGNESIUM [Concomitant]

REACTIONS (30)
  - HOSPITALISATION [None]
  - BACK PAIN [None]
  - ARTHRALGIA [None]
  - NAUSEA [None]
  - BLOOD MAGNESIUM DECREASED [None]
  - VOMITING [None]
  - COMPRESSION FRACTURE [None]
  - DYSPNOEA [None]
  - OEDEMA PERIPHERAL [None]
  - ASTHENIA [None]
  - HYPERTENSION [None]
  - MUSCLE SPASMS [None]
  - VISUAL ACUITY REDUCED [None]
  - PARAESTHESIA [None]
  - TOOTH INJURY [None]
  - CHRONIC OBSTRUCTIVE PULMONARY DISEASE [None]
  - NODULE [None]
  - CONTUSION [None]
  - OEDEMA MOUTH [None]
  - MALAISE [None]
  - URINARY TRACT INFECTION [None]
  - CATARACT [None]
  - ORAL PAIN [None]
  - BLOOD CALCIUM INCREASED [None]
  - PANCREATITIS [None]
  - POOR QUALITY DRUG ADMINISTERED [None]
  - BLOOD POTASSIUM DECREASED [None]
  - EMPHYSEMA [None]
  - ABDOMINAL PAIN UPPER [None]
  - MEMORY IMPAIRMENT [None]
